FAERS Safety Report 22381798 (Version 2)
Quarter: 2023Q2

REPORT INFORMATION
  Report Type: Spontaneous
  Country: FR (occurrence: FR)
  Receive Date: 20230530
  Receipt Date: 20230619
  Transmission Date: 20230722
  Serious: Yes (Hospitalization, Disabling, Other)
  Sender: FDA-Public Use
  Company Number: FR-1577272925-E2011-02535

PATIENT
  Age: 16 Year
  Sex: Female
  Weight: 67 kg

DRUGS (4)
  1. TYSABRI [Suspect]
     Active Substance: NATALIZUMAB
     Indication: Product used for unknown indication
     Route: 050
  2. GARDASIL [Suspect]
     Active Substance: HUMAN PAPILLOMAVIRUS QUADRIVALENT (TYPES 6, 11, 16, AND 18) VACCINE, RECOMBINANT
     Indication: Prophylaxis
     Dosage: 1 DOSAGE FORM
     Route: 050
     Dates: start: 20101213, end: 20101213
  3. GARDASIL [Suspect]
     Active Substance: HUMAN PAPILLOMAVIRUS QUADRIVALENT (TYPES 6, 11, 16, AND 18) VACCINE, RECOMBINANT
     Dosage: 1 DOSAGE FORM
     Route: 050
     Dates: start: 20101011, end: 20101011
  4. SOLU-MEDROL [Suspect]
     Active Substance: METHYLPREDNISOLONE SODIUM SUCCINATE
     Indication: Product used for unknown indication
     Route: 050

REACTIONS (33)
  - Coma [Recovered/Resolved]
  - Gait disturbance [Unknown]
  - Optic neuritis [Recovered/Resolved]
  - Ataxia [Unknown]
  - Paralysis [Unknown]
  - Vertigo [Recovered/Resolved]
  - Headache [Not Recovered/Not Resolved]
  - Ear pain [Unknown]
  - Acute disseminated encephalomyelitis [Recovered/Resolved]
  - Cerebrovascular accident [Recovered/Resolved]
  - Deafness unilateral [Unknown]
  - Cerebellar syndrome [Recovered/Resolved]
  - Blindness unilateral [Unknown]
  - Myelin oligodendrocyte glycoprotein antibody-associated disease [Unknown]
  - Paraesthesia [Unknown]
  - Gait inability [Unknown]
  - Social avoidant behaviour [Recovered/Resolved]
  - Nystagmus [Recovered/Resolved]
  - Paraesthesia [Recovered/Resolved]
  - Hypoacusis [Unknown]
  - Multiple sclerosis [Not Recovered/Not Resolved]
  - Loss of consciousness [Unknown]
  - Encephalomyelitis [Unknown]
  - Nausea [Recovered/Resolved]
  - Vomiting [Recovered/Resolved]
  - Dizziness [Unknown]
  - Fatigue [Not Recovered/Not Resolved]
  - Acute vestibular syndrome [Not Recovered/Not Resolved]
  - Facial paralysis [Unknown]
  - Asthenia [Not Recovered/Not Resolved]
  - Maternal exposure before pregnancy [Unknown]
  - Dysgraphia [Unknown]
  - Depression [Unknown]

NARRATIVE: CASE EVENT DATE: 20101001
